FAERS Safety Report 13521685 (Version 3)
Quarter: 2017Q2

REPORT INFORMATION
  Report Type: Spontaneous
  Country: BR (occurrence: BR)
  Receive Date: 20170508
  Receipt Date: 20170525
  Transmission Date: 20170830
  Serious: Yes (Other)
  Sender: FDA-Public Use
  Company Number: BR-ROCHE-1622031

PATIENT
  Sex: Female
  Weight: 74 kg

DRUGS (4)
  1. RIVOTRIL [Suspect]
     Active Substance: CLONAZEPAM
     Indication: ANXIETY
     Route: 048
  2. RIVOTRIL [Suspect]
     Active Substance: CLONAZEPAM
     Route: 048
  3. RIVOTRIL [Suspect]
     Active Substance: CLONAZEPAM
     Indication: STRESS
     Route: 048
     Dates: start: 19870101
  4. RIVOTRIL [Suspect]
     Active Substance: CLONAZEPAM
     Route: 048

REACTIONS (6)
  - Malaise [Unknown]
  - Product dropper issue [Unknown]
  - Fatigue [Not Recovered/Not Resolved]
  - Thyroid disorder [Unknown]
  - Ill-defined disorder [Unknown]
  - Nephrolithiasis [Unknown]

NARRATIVE: CASE EVENT DATE: 1995
